FAERS Safety Report 10233826 (Version 1)
Quarter: 2014Q2

REPORT INFORMATION
  Report Type: Spontaneous
  Country: CH (occurrence: None)
  Receive Date: 20140610
  Receipt Date: 20140610
  Transmission Date: 20141212
  Serious: Yes (Other)
  Sender: FDA-Public Use
  Company Number: 20140311

PATIENT
  Age: 34 Year
  Sex: Female

DRUGS (1)
  1. FERINJECT (FERRIC CARBOXYMALTOSE - VIFOR) [Suspect]
     Indication: IRON DEFICIENCY ANAEMIA
     Dosage: 1 IN 1 TOTAL
     Route: 041
     Dates: start: 20140430

REACTIONS (3)
  - Vomiting [None]
  - Pruritus generalised [None]
  - Chest pain [None]
